FAERS Safety Report 12821013 (Version 2)
Quarter: 2016Q4

REPORT INFORMATION
  Report Type: Other
  Country: KR (occurrence: KR)
  Receive Date: 20161006
  Receipt Date: 20161027
  Transmission Date: 20170207
  Serious: Yes (Hospitalization, Other)
  Sender: FDA-Public Use
  Company Number: KR-CELLTRION INC.-2016KR009553

PATIENT

DRUGS (81)
  1. ISOSORBIDE-5-MONONITRATE [Concomitant]
     Dosage: 30 MG, UNK
     Route: 048
     Dates: start: 20160928, end: 20160930
  2. TAZOPERAN [Concomitant]
     Dosage: 4.5 UNK, UNK
     Route: 042
     Dates: start: 20160923, end: 20161006
  3. ANTITHROMBIN III [Concomitant]
     Active Substance: ANTITHROMBIN III HUMAN
     Indication: PROPHYLAXIS
     Dosage: 500 IU, UNK
     Route: 042
     Dates: start: 20160922, end: 20160922
  4. ANTITHROMBIN III [Concomitant]
     Active Substance: ANTITHROMBIN III HUMAN
     Dosage: 500 UNK, UNK
     Route: 042
     Dates: start: 20160927, end: 20160928
  5. SODIUM CHLORIDE. [Concomitant]
     Active Substance: SODIUM CHLORIDE
     Dosage: 100 UNK, UNK
     Route: 042
     Dates: start: 20160928, end: 20160928
  6. SODIUM CHLORIDE. [Concomitant]
     Active Substance: SODIUM CHLORIDE
     Dosage: 100 UNK, UNK
     Route: 042
     Dates: start: 20160930, end: 20160930
  7. POTASSIUM CHLORIDE. [Concomitant]
     Active Substance: POTASSIUM CHLORIDE
     Dosage: 40 MEQ, UNK
     Route: 042
     Dates: start: 20160928, end: 20160928
  8. FUROSEMIDE. [Concomitant]
     Active Substance: FUROSEMIDE
     Indication: CARDIAC FAILURE CONGESTIVE
     Dosage: 20 MG, UNK
     Route: 042
     Dates: start: 20160925, end: 20160926
  9. FUROSEMIDE. [Concomitant]
     Active Substance: FUROSEMIDE
     Dosage: 10 MG, UNK
     Route: 042
     Dates: start: 20160927, end: 20160927
  10. ESMOLOL HCL [Concomitant]
     Indication: ARRHYTHMIA
     Dosage: 2.5 G, UNK
     Route: 042
     Dates: start: 20160925, end: 20160927
  11. MEDILAC [Concomitant]
     Indication: PROPHYLAXIS
     Dosage: 250 MG, UNK
     Route: 048
     Dates: start: 20160929, end: 20160930
  12. REMSIMA [Suspect]
     Active Substance: INFLIXIMAB
     Indication: CROHN^S DISEASE
     Dosage: 300 MG, SINGLE(5 MG/KG)
     Route: 042
     Dates: start: 20160914, end: 20160914
  13. PREDNISOLONE. [Concomitant]
     Active Substance: PREDNISOLONE
     Indication: CROHN^S DISEASE
     Dosage: 30 MG, UNK
     Route: 048
     Dates: start: 20160909, end: 20160916
  14. PREDNISOLONE. [Concomitant]
     Active Substance: PREDNISOLONE
     Dosage: 25 MG, UNK
     Route: 048
     Dates: start: 20160917, end: 20160921
  15. ISOSORBIDE-5-MONONITRATE [Concomitant]
     Indication: ANGINA UNSTABLE
     Dosage: 30 MG, UNK
     Route: 048
     Dates: start: 20160922, end: 20160922
  16. POTASSIUM CHLORIDE. [Concomitant]
     Active Substance: POTASSIUM CHLORIDE
     Dosage: 40 MEQ, UNK
     Route: 042
     Dates: start: 20160924, end: 20160924
  17. POTASSIUM PHOSPHATE MONOBASIC [Concomitant]
     Active Substance: POTASSIUM PHOSPHATE, MONOBASIC
     Dosage: 40 ML, UNK
     Route: 042
     Dates: start: 20160927, end: 20160927
  18. FLUMAZENIL. [Concomitant]
     Active Substance: FLUMAZENIL
     Indication: TERMINAL INSOMNIA
     Dosage: 0.5 MG, UNK
     Route: 042
     Dates: start: 20160924, end: 20160924
  19. INSULIN NPH                        /01223208/ [Concomitant]
     Indication: PROPHYLAXIS
     Dosage: 2 IU, UNK
     Route: 042
     Dates: start: 20160927, end: 20160927
  20. NICORANDIL [Concomitant]
     Active Substance: NICORANDIL
     Indication: ANGINA UNSTABLE
     Dosage: 5 MG, UNK
     Route: 048
     Dates: start: 20160928
  21. AZATHIOPRINE. [Concomitant]
     Active Substance: AZATHIOPRINE
     Indication: CROHN^S DISEASE
     Dosage: 50 MG, UNK
     Route: 048
     Dates: start: 20160901, end: 20160921
  22. ACETYLCYSTEINE. [Concomitant]
     Active Substance: ACETYLCYSTEINE
     Dosage: 800 UNK, INHALATIONAL
     Dates: start: 20160923, end: 20161001
  23. ALBUMIN [Concomitant]
     Active Substance: ALBUMIN HUMAN
     Indication: HYPOALBUMINAEMIA
     Dosage: 100 ML, UNK
     Route: 042
     Dates: start: 20160922, end: 20160930
  24. SODIUM CHLORIDE. [Concomitant]
     Active Substance: SODIUM CHLORIDE
     Indication: HYPONATRAEMIA
     Dosage: 40 MEQ, UNK
     Route: 042
     Dates: start: 20160922, end: 20160922
  25. CALCIUM GLUCONATE. [Concomitant]
     Active Substance: CALCIUM GLUCONATE
     Indication: PROPHYLAXIS
     Dosage: 2 G, UNK
     Route: 042
     Dates: start: 20160923, end: 20160929
  26. ENOXAPARIN SODIUM. [Concomitant]
     Active Substance: ENOXAPARIN SODIUM
     Indication: THROMBOSIS PROPHYLAXIS
     Dosage: 40 MG, UNK
     Route: 058
     Dates: start: 20160923, end: 20160926
  27. FUROSEMIDE. [Concomitant]
     Active Substance: FUROSEMIDE
     Indication: PLEURAL EFFUSION
     Dosage: 10 MG, UNK
     Route: 042
     Dates: start: 20160924, end: 20160924
  28. DIPEPTIVEN [Concomitant]
     Active Substance: GLUTAMINE
     Indication: SUPPLEMENTATION THERAPY
     Dosage: 100 ML, UNK
     Route: 042
     Dates: start: 20160926, end: 20160928
  29. BISOPROLOL HEMIFUMARATE [Concomitant]
     Active Substance: BISOPROLOL FUMARATE
     Indication: HYPERTENSION
     Dosage: 2.5 MG, UNK
     Route: 048
     Dates: start: 20160928, end: 20161010
  30. TRIMETAZIDINE 2HCL [Concomitant]
     Indication: ANGINA UNSTABLE
     Dosage: 35 MG, UNK
     Route: 048
     Dates: start: 20160928
  31. REMSIMA [Suspect]
     Active Substance: INFLIXIMAB
     Dosage: 300 MG, SINGLE(5 MG/KG)
     Route: 042
     Dates: start: 20161007, end: 20161007
  32. SCOPOLAMINE-N- BUTYLBROMIDE [Concomitant]
     Indication: ABDOMINAL PAIN
     Dosage: 20 MG, UNK
     Route: 042
     Dates: start: 20160922, end: 20160922
  33. PALONOSETRON [Concomitant]
     Active Substance: PALONOSETRON
     Indication: PROPHYLAXIS OF NAUSEA AND VOMITING
     Dosage: 0.15 MG, UNK
     Route: 042
     Dates: start: 20160922, end: 20160922
  34. ALBUMIN [Concomitant]
     Active Substance: ALBUMIN HUMAN
     Dosage: 100 UNK, UNK
     Route: 042
     Dates: start: 20160925, end: 20160929
  35. ANTITHROMBIN III [Concomitant]
     Active Substance: ANTITHROMBIN III HUMAN
     Dosage: 500 UNK, UNK
     Route: 042
     Dates: start: 20160923, end: 20160923
  36. SODIUM CHLORIDE. [Concomitant]
     Active Substance: SODIUM CHLORIDE
     Dosage: 120 UNK, UNK
     Route: 042
     Dates: start: 20160923, end: 20160923
  37. SODIUM CHLORIDE. [Concomitant]
     Active Substance: SODIUM CHLORIDE
     Dosage: 100 UNK, UNK
     Route: 042
     Dates: start: 20160924, end: 20160924
  38. POTASSIUM PHOSPHATE MONOBASIC [Concomitant]
     Active Substance: POTASSIUM PHOSPHATE, MONOBASIC
     Indication: PROPHYLAXIS
     Dosage: 20 ML, UNK
     Route: 042
     Dates: start: 20160924, end: 20160926
  39. POTASSIUM PHOSPHATE MONOBASIC [Concomitant]
     Active Substance: POTASSIUM PHOSPHATE, MONOBASIC
     Dosage: 20 ML, UNK
     Route: 042
     Dates: start: 20160928, end: 20160929
  40. FUROSEMIDE. [Concomitant]
     Active Substance: FUROSEMIDE
     Dosage: 20 MG, UNK
     Route: 048
     Dates: start: 20160928, end: 20161001
  41. METHYLPREDNISOLONE SODIUM SUCCINATE. [Concomitant]
     Active Substance: METHYLPREDNISOLONE SODIUM SUCCINATE
     Indication: INFECTION PROPHYLAXIS
     Dosage: 16 MG, UNK
     Route: 042
     Dates: start: 20160925, end: 20160926
  42. ACETYLCYSTEINE. [Concomitant]
     Active Substance: ACETYLCYSTEINE
     Indication: PROPHYLAXIS
     Dosage: 800 MG, INHALATIONAL
     Dates: start: 20160922, end: 20160922
  43. TAZOPERAN [Concomitant]
     Indication: INFECTION PROPHYLAXIS
     Dosage: 4.5 G, UNK
     Route: 042
     Dates: start: 20160922, end: 20160922
  44. ANTITHROMBIN III [Concomitant]
     Active Substance: ANTITHROMBIN III HUMAN
     Dosage: 500 UNK, UNK
     Route: 042
     Dates: start: 20160924, end: 20160924
  45. SODIUM CHLORIDE. [Concomitant]
     Active Substance: SODIUM CHLORIDE
     Dosage: 100 UNK, UNK
     Route: 042
     Dates: start: 20160929, end: 20160929
  46. TAMIPOOL [Concomitant]
     Active Substance: VITAMINS
     Indication: PROPHYLAXIS
     Dosage: 1 VIAL
     Route: 042
     Dates: start: 20160923, end: 20160923
  47. CHLORPHENIRAMINE MALEATE. [Concomitant]
     Active Substance: CHLORPHENIRAMINE MALEATE
     Dosage: 4 MG, UNK
     Route: 042
     Dates: start: 20160927, end: 20160927
  48. DIGOXIN. [Concomitant]
     Active Substance: DIGOXIN
     Dosage: 0.125 MG, UNK
     Route: 042
     Dates: start: 20160929, end: 20160930
  49. PREDNISOLONE. [Concomitant]
     Active Substance: PREDNISOLONE
     Dosage: 20 MG, UNK
     Route: 048
     Dates: start: 20160929, end: 20161004
  50. PREDNISOLONE. [Concomitant]
     Active Substance: PREDNISOLONE
     Dosage: 15 MG, UNK
     Route: 048
     Dates: start: 20160905, end: 20161013
  51. ALBUMIN [Concomitant]
     Active Substance: ALBUMIN HUMAN
     Dosage: 100 UNK, UNK
     Route: 042
     Dates: start: 20160923, end: 20160924
  52. TAMIPOOL [Concomitant]
     Active Substance: VITAMINS
     Dosage: 1 VIAL
     Route: 042
     Dates: start: 20160925, end: 20160925
  53. POTASSIUM CHLORIDE. [Concomitant]
     Active Substance: POTASSIUM CHLORIDE
     Indication: PROPHYLAXIS
     Dosage: 80 MEQ, UNK
     Route: 042
     Dates: start: 20160923, end: 20160923
  54. POTASSIUM CHLORIDE. [Concomitant]
     Active Substance: POTASSIUM CHLORIDE
     Dosage: 50 MEQ, UNK
     Route: 042
     Dates: start: 20160926, end: 20160927
  55. HYDROCORTISONE SODIUM SUCCINATE [Concomitant]
     Active Substance: HYDROCORTISONE SODIUM SUCCINATE
     Dosage: 100 MG, UNK
     Route: 042
     Dates: start: 20160924, end: 20160924
  56. MIDAZOLAM [Concomitant]
     Active Substance: MIDAZOLAM\MIDAZOLAM HYDROCHLORIDE
     Indication: SEDATION
     Dosage: 2 MG, UNK
     Route: 042
     Dates: start: 20160924, end: 20160924
  57. LOSARTAN. [Concomitant]
     Active Substance: LOSARTAN
     Indication: HYPERTENSION
     Dosage: 50 MG, UNK
     Route: 048
     Dates: start: 20160928, end: 20161011
  58. NITROGLYCERIN. [Concomitant]
     Active Substance: NITROGLYCERIN
     Indication: ANGINA UNSTABLE
     Dosage: 100 MG, UNK
     Route: 042
     Dates: start: 20160930, end: 20160930
  59. SPIRONOLACTONE. [Concomitant]
     Active Substance: SPIRONOLACTONE
     Indication: HYPERTENSION
     Dosage: 25 MG, UNK
     Route: 048
     Dates: start: 20160928, end: 20160930
  60. PANCREATIN [Concomitant]
     Active Substance: PANCRELIPASE
     Indication: PROPHYLAXIS
     Dosage: 1 CAPSULE
     Route: 048
     Dates: start: 20160929
  61. PETHIDINE HCL [Concomitant]
     Indication: ABDOMINAL PAIN
     Dosage: 25 MG, UNK
     Route: 042
     Dates: start: 20160922, end: 20160922
  62. PALONOSETRON [Concomitant]
     Active Substance: PALONOSETRON
     Dosage: 0.075 UNK, UNK
     Route: 042
     Dates: start: 20160922, end: 20160923
  63. PALONOSETRON [Concomitant]
     Active Substance: PALONOSETRON
     Dosage: 0.075 UNK, UNK
     Route: 042
     Dates: start: 20160924, end: 20160924
  64. PANTOPRAZOLE [Concomitant]
     Active Substance: PANTOPRAZOLE SODIUM
     Indication: PROPHYLAXIS AGAINST GASTROINTESTINAL ULCER
     Dosage: 40 MG, UNK
     Route: 042
     Dates: start: 20160922, end: 20160928
  65. PROPACETAMOL HCL [Concomitant]
     Indication: PYREXIA
     Dosage: 1 G, UNK
     Route: 042
     Dates: start: 20160922, end: 20160922
  66. ANTITHROMBIN III [Concomitant]
     Active Substance: ANTITHROMBIN III HUMAN
     Dosage: 500 UNK, UNK
     Route: 042
     Dates: start: 20160925, end: 20160925
  67. SODIUM CHLORIDE. [Concomitant]
     Active Substance: SODIUM CHLORIDE
     Dosage: 100 UNK, UNK
     Route: 042
     Dates: start: 20160925, end: 20160925
  68. POTASSIUM CHLORIDE. [Concomitant]
     Active Substance: POTASSIUM CHLORIDE
     Dosage: 60 MEQ, UNK
     Route: 042
     Dates: start: 20160925, end: 20160925
  69. HYDROCORTISONE SODIUM SUCCINATE [Concomitant]
     Active Substance: HYDROCORTISONE SODIUM SUCCINATE
     Indication: INFECTION PROPHYLAXIS
     Dosage: 100 MG, UNK
     Route: 042
     Dates: start: 20160923, end: 20160923
  70. NOREPINEPHRINE BITARTRATE. [Concomitant]
     Active Substance: NOREPINEPHRINE BITARTRATE
     Indication: HYPOTENSION
     Dosage: 40 MG, UNK
     Route: 042
     Dates: start: 20160924, end: 20160926
  71. CHLORPHENIRAMINE MALEATE. [Concomitant]
     Active Substance: CHLORPHENIRAMINE MALEATE
     Indication: PROPHYLAXIS
     Dosage: 4 MG, UNK
     Route: 042
     Dates: start: 20160924, end: 20160924
  72. ESMOLOL HCL [Concomitant]
     Dosage: UNK
     Dates: start: 20160925, end: 20160927
  73. DIGOXIN. [Concomitant]
     Active Substance: DIGOXIN
     Indication: CARDIAC FAILURE CONGESTIVE
     Dosage: 0.25 MG, UNK
     Route: 042
     Dates: start: 20160928, end: 20160928
  74. ASPIRIN ENTERIC COATED K.P. [Concomitant]
     Active Substance: ASPIRIN
     Indication: ANGINA UNSTABLE
     Dosage: 100 MG, UNK
     Route: 048
     Dates: start: 20160928, end: 20161007
  75. NITROGLYCERIN. [Concomitant]
     Active Substance: NITROGLYCERIN
     Indication: HYPERTENSION
     Dosage: 100 MG, UNK
     Route: 042
     Dates: start: 20160928, end: 20160928
  76. AZATHIOPRINE. [Concomitant]
     Active Substance: AZATHIOPRINE
     Dosage: UNK
  77. PROPACETAMOL HCL [Concomitant]
     Dosage: 2 G, UNK
     Route: 042
     Dates: start: 20160924, end: 20160924
  78. SODIUM CHLORIDE. [Concomitant]
     Active Substance: SODIUM CHLORIDE
     Dosage: 100 UNK, UNK
     Route: 042
     Dates: start: 20160926, end: 20160927
  79. TAMIPOOL [Concomitant]
     Active Substance: VITAMINS
     Dosage: 1 VIAL
     Route: 042
     Dates: start: 20160930, end: 20160930
  80. AMIODARONE [Concomitant]
     Active Substance: AMIODARONE
     Indication: ARRHYTHMIA
     Dosage: 900 MG, UNK
     Route: 042
     Dates: start: 20160924, end: 20160927
  81. ROSUVASTATIN. [Concomitant]
     Active Substance: ROSUVASTATIN
     Indication: PROPHYLAXIS
     Dosage: 10 MG, UNK
     Route: 048
     Dates: start: 20160928

REACTIONS (5)
  - Ileal perforation [Recovered/Resolved with Sequelae]
  - Pleural effusion [Unknown]
  - Cardiac failure congestive [Unknown]
  - Delirium [Unknown]
  - Pneumonia [Unknown]

NARRATIVE: CASE EVENT DATE: 20160922
